FAERS Safety Report 5325052-6 (Version None)
Quarter: 2007Q2

REPORT INFORMATION
  Report Type: 
  Country: None (occurrence: None)
  Receive Date: 20070228
  Receipt Date: 20060119
  Transmission Date: 20071010
  Serious: Yes (Hospitalization)
  Sender: FDA-Public Use
  Company Number: 2006UW00330

PATIENT
  Age: 46 Year
  Sex: Female
  Weight: 46.7205 kg

DRUGS (4)
  1. ACCOLATE [Suspect]
     Indication: SCAR
     Dosage: 20 MG BID PO
     Route: 048
     Dates: end: 20051201
  2. TYLENOL EXTRA-STRENGTH [Concomitant]
  3. FOSAMAX [Concomitant]
  4. MULTIVITAMIN [Concomitant]

REACTIONS (1)
  - HEPATITIS [None]
